FAERS Safety Report 19660068 (Version 1)
Quarter: 2021Q3

REPORT INFORMATION
  Report Type: Spontaneous
  Country: US (occurrence: US)
  Receive Date: 20210804
  Receipt Date: 20210804
  Transmission Date: 20211014
  Serious: Yes (Other)
  Sender: FDA-Public Use
  Company Number: None

PATIENT
  Age: 55 Year
  Sex: Female

DRUGS (18)
  1. TRAZODONE [Concomitant]
     Active Substance: TRAZODONE HYDROCHLORIDE
     Dates: start: 20210524
  2. DICLOFENAC [Concomitant]
     Active Substance: DICLOFENAC
     Dates: start: 20210524
  3. METHYLPRED [Concomitant]
     Active Substance: METHYLPREDNISOLONE
     Dates: start: 20210524
  4. LORTAB [Concomitant]
     Active Substance: ACETAMINOPHEN\HYDROCODONE BITARTRATE
     Dates: start: 20210524
  5. ONDANSETRON [Concomitant]
     Active Substance: ONDANSETRON
     Dates: start: 20210524
  6. LISINOPRIL. [Concomitant]
     Active Substance: LISINOPRIL
     Dates: start: 20210524
  7. FLUTICASONE. [Concomitant]
     Active Substance: FLUTICASONE
     Dates: start: 20210524
  8. CALCITROL [Concomitant]
     Dates: start: 20210524
  9. CABOMETYX [Suspect]
     Active Substance: CABOZANTINIB S-MALATE
     Indication: THYROID CANCER
     Route: 048
     Dates: start: 20210524
  10. SUCRALFATE. [Concomitant]
     Active Substance: SUCRALFATE
     Dates: start: 20210524
  11. OXYCODONE AND ACETAMINOPHEN [Concomitant]
     Active Substance: ACETAMINOPHEN\OXYCODONE HYDROCHLORIDE
     Dates: start: 20210524
  12. FAMOTIDINE. [Concomitant]
     Active Substance: FAMOTIDINE
     Dates: start: 20210524
  13. PEG [Concomitant]
     Active Substance: POLYETHYLENE GLYCOLS
     Dates: start: 20210524
  14. METOPROLOL TARTRATE. [Concomitant]
     Active Substance: METOPROLOL TARTRATE
     Dates: start: 20210524
  15. PROMETHAZINE [Concomitant]
     Active Substance: PROMETHAZINE HYDROCHLORIDE
     Dates: start: 20210524
  16. METRONIDAZOL [Concomitant]
     Active Substance: METRONIDAZOLE
     Dates: start: 20210524
  17. LEVOTHYROXIN [Concomitant]
     Active Substance: LEVOTHYROXINE
     Dates: start: 20210524
  18. AMLODIPINE [Concomitant]
     Active Substance: AMLODIPINE BESYLATE
     Dates: start: 20210524

REACTIONS (2)
  - Therapy cessation [None]
  - Radiotherapy [None]

NARRATIVE: CASE EVENT DATE: 20210803
